FAERS Safety Report 9280670 (Version 1)
Quarter: 2013Q2

REPORT INFORMATION
  Report Type: Spontaneous
  Country: US (occurrence: US)
  Receive Date: 20130509
  Receipt Date: 20130509
  Transmission Date: 20140414
  Serious: No
  Sender: FDA-Public Use
  Company Number: US-PFIZER INC-2013141637

PATIENT
  Sex: Female

DRUGS (2)
  1. PRISTIQ [Suspect]
     Indication: DEPRESSION
     Dosage: 100 MG, UNK
  2. VIIBRYD [Suspect]
     Dosage: 5 MG, UNK

REACTIONS (4)
  - Inappropriate schedule of drug administration [Unknown]
  - Insomnia [Unknown]
  - Crying [Unknown]
  - Anxiety [Unknown]
